FAERS Safety Report 14912865 (Version 2)
Quarter: 2018Q2

REPORT INFORMATION
  Report Type: Other
  Country: CA (occurrence: CA)
  Receive Date: 20180518
  Receipt Date: 20180619
  Transmission Date: 20180711
  Serious: Yes (Other)
  Sender: FDA-Public Use
  Company Number: CA-APOTEX-2018AP013448

PATIENT
  Age: 64 Year
  Sex: Female

DRUGS (1)
  1. METFORMIN [Suspect]
     Active Substance: METFORMIN HYDROCHLORIDE
     Indication: DIABETES MELLITUS
     Dosage: 3 DF, QD
     Route: 065

REACTIONS (4)
  - Swollen tongue [Unknown]
  - Diarrhoea [Unknown]
  - Dizziness [Unknown]
  - Product odour abnormal [Unknown]
